FAERS Safety Report 21661895 (Version 1)
Quarter: 2022Q4

REPORT INFORMATION
  Report Type: Spontaneous
  Country: US (occurrence: US)
  Receive Date: 20221130
  Receipt Date: 20221130
  Transmission Date: 20230113
  Serious: Yes (Death, Other)
  Sender: FDA-Public Use
  Company Number: US-BRISTOL-MYERS SQUIBB COMPANY-2022-145385

PATIENT
  Sex: Female

DRUGS (3)
  1. ONUREG [Suspect]
     Active Substance: AZACITIDINE
     Indication: Acute myeloid leukaemia
     Dosage: CYCLE 1, DAY 1 AZACYTADINE ON 09-JAN-2020 WITH VENETOCLAX.^
     Route: 065
     Dates: start: 20200109
  2. ONUREG [Suspect]
     Active Substance: AZACITIDINE
     Dosage: ORAL AZACITIDINE MAINTENANCE 300 MG QD ON DAYS 1-14 OF EACH 28-DAY TREATMENT CYCLE (INITIATED APRIL
     Route: 048
     Dates: start: 20210405, end: 202209
  3. VENETOCLAX [Suspect]
     Active Substance: VENETOCLAX
     Indication: Acute myeloid leukaemia
     Dosage: QD ON DAYS 15-28 OF EACH 28-DAY TREATMENT CYCLE , ONLY FOR TWO WEEKS
     Route: 065
     Dates: start: 20200109, end: 202108

REACTIONS (1)
  - Death [Fatal]
